FAERS Safety Report 16067311 (Version 1)
Quarter: 2019Q1

REPORT INFORMATION
  Report Type: Spontaneous
  Country: US (occurrence: US)
  Receive Date: 20190212
  Receipt Date: 20190212
  Transmission Date: 20190418
  Serious: Yes (Hospitalization, Other)
  Sender: FDA-Public Use
  Company Number: None

PATIENT
  Age: 44 Year
  Sex: Female
  Weight: 79.6 kg

DRUGS (4)
  1. PRIFTIN [Suspect]
     Active Substance: RIFAPENTINE
     Route: 048
     Dates: start: 20161205, end: 20161220
  2. PYRIDOXINE 50MG [Suspect]
     Active Substance: PYRIDOXINE
     Indication: CLINICAL TRIAL PARTICIPANT
     Dates: start: 20161205, end: 20161220
  3. DOLUTEGRAVIR (TIVICAY) 50MG [Suspect]
     Active Substance: DOLUTEGRAVIR
     Indication: CLINICAL TRIAL PARTICIPANT
     Route: 048
     Dates: start: 20161201, end: 20161220
  4. ISONIAZID 300MG [Suspect]
     Active Substance: ISONIAZID
     Indication: CLINICAL TRIAL PARTICIPANT
     Route: 048
     Dates: start: 20161205, end: 20161220

REACTIONS (13)
  - Transaminases increased [None]
  - Differential white blood cell count abnormal [None]
  - Influenza like illness [None]
  - Lymphocyte count decreased [None]
  - Orthostatic hypotension [None]
  - Alanine aminotransferase increased [None]
  - Blood calcium decreased [None]
  - Platelet count decreased [None]
  - Blood alkaline phosphatase increased [None]
  - White blood cell count decreased [None]
  - Blood albumin decreased [None]
  - Aspartate aminotransferase increased [None]
  - Bilirubin conjugated increased [None]

NARRATIVE: CASE EVENT DATE: 20161220
